FAERS Safety Report 23919700 (Version 2)
Quarter: 2024Q2

REPORT INFORMATION
  Report Type: Spontaneous
  Country: CN (occurrence: CN)
  Receive Date: 20240530
  Receipt Date: 20240607
  Transmission Date: 20240716
  Serious: Yes (Other)
  Sender: FDA-Public Use
  Company Number: CN-GILEAD-2024-0674608

PATIENT
  Age: 52 Year
  Sex: Male

DRUGS (1)
  1. BIKTARVY [Suspect]
     Active Substance: BICTEGRAVIR SODIUM\EMTRICITABINE\TENOFOVIR ALAFENAMIDE FUMARATE
     Indication: Prophylaxis against HIV infection
     Dosage: UNK
     Route: 065
     Dates: start: 20231208

REACTIONS (2)
  - Hepatitis B reactivation [Not Recovered/Not Resolved]
  - Off label use [Unknown]
